FAERS Safety Report 9002380 (Version 1)
Quarter: 2012Q4

REPORT INFORMATION
  Report Type: Spontaneous
  Country: US (occurrence: None)
  Receive Date: 20121128
  Receipt Date: 20121128
  Transmission Date: 20130627
  Serious: Yes (Hospitalization)
  Sender: FDA-Public Use
  Company Number: 31869

PATIENT
  Age: 37 Year
  Sex: Male
  Weight: 61.69 kg

DRUGS (3)
  1. KEPPRA [Suspect]
     Route: 048
     Dates: start: 201209, end: 20121017
  2. GLASSIA [Suspect]
     Route: 042
     Dates: start: 201207
  3. FENTANYL PATCH, THEOPHYLLINE, CLONIPINE, CELEXA, ABILIFY, ADVAIR, SPIRIVA [Concomitant]

REACTIONS (5)
  - Convulsion [None]
  - Dyspnoea [None]
  - Cardio-respiratory arrest [None]
  - Pneumothorax [None]
  - Therapeutic response decreased [None]
